FAERS Safety Report 6385029-9 (Version None)
Quarter: 2009Q4

REPORT INFORMATION
  Report Type: 
  Country: None (occurrence: None)
  Receive Date: 20091002
  Receipt Date: 20090925
  Transmission Date: 20100525
  Serious: Yes (Other)
  Sender: FDA-Public Use
  Company Number: PHHY2009DE41726

PATIENT
  Age: 90 Year
  Sex: Female

DRUGS (1)
  1. VOLTAREN [Suspect]
     Dosage: 100 MG, UNK
     Route: 048
     Dates: start: 20090921

REACTIONS (1)
  - GLYCOSURIA [None]
